FAERS Safety Report 4765889-5 (Version None)
Quarter: 2005Q3

REPORT INFORMATION
  Report Type: 
  Country: None (occurrence: None)
  Receive Date: 20050912
  Receipt Date: 20050317
  Transmission Date: 20060218
  Serious: Yes (Hospitalization, Other)
  Sender: FDA-Public Use
  Company Number: PHEH2005US03340

PATIENT
  Age: 35 Year
  Sex: Female
  Weight: 112 kg

DRUGS (3)
  1. GLEEVEC [Suspect]
     Indication: CHRONIC MYELOID LEUKAEMIA
     Dosage: 400 MG, QD
     Route: 048
     Dates: start: 20040907, end: 20041007
  2. GLEEVEC [Suspect]
     Dosage: 400 MG, QD
     Route: 048
     Dates: start: 20041026, end: 20041028
  3. GLEEVEC [Suspect]
     Dosage: UNK, NO TREATMENT
     Dates: start: 20041007, end: 20041028

REACTIONS (24)
  - ALANINE AMINOTRANSFERASE INCREASED [None]
  - ASPARTATE AMINOTRANSFERASE INCREASED [None]
  - ASPIRATION PLEURAL CAVITY [None]
  - ATELECTASIS [None]
  - BLOOD ALKALINE PHOSPHATASE INCREASED [None]
  - BLOOD CREATININE INCREASED [None]
  - BLOOD LACTATE DEHYDROGENASE INCREASED [None]
  - BLOOD SODIUM DECREASED [None]
  - BLOOD URIC ACID INCREASED [None]
  - CHILLS [None]
  - CONVULSION [None]
  - DYSPNOEA [None]
  - EOSINOPHILIA [None]
  - EXFOLIATIVE RASH [None]
  - GAMMA-GLUTAMYLTRANSFERASE INCREASED [None]
  - HAEMATOCRIT DECREASED [None]
  - HAEMATURIA [None]
  - INAPPROPRIATE ANTIDIURETIC HORMONE SECRETION [None]
  - MENTAL STATUS CHANGES [None]
  - PLEURAL EFFUSION [None]
  - PYREXIA [None]
  - RASH [None]
  - SPECIFIC GRAVITY URINE INCREASED [None]
  - VOMITING [None]
